FAERS Safety Report 7332825-7 (Version None)
Quarter: 2011Q1

REPORT INFORMATION
  Report Type: 
  Country: None (occurrence: None)
  Receive Date: 20110304
  Receipt Date: 20110222
  Transmission Date: 20110831
  Serious: Yes (Hospitalization, Other)
  Sender: FDA-Public Use
  Company Number: PHHY2010US69895

PATIENT
  Sex: Female

DRUGS (15)
  1. NEXIUM [Concomitant]
     Dosage: 40 MG, DAILY
  2. FLUCONAZOLE [Concomitant]
     Dosage: 200 MG, TID
  3. ARANESP [Concomitant]
     Indication: ANAEMIA
     Dosage: 300 UG, QW
  4. RED BLOOD CELLS [Concomitant]
  5. EXJADE [Suspect]
     Indication: MYELODYSPLASTIC SYNDROME
     Dosage: 500 MG, BID
     Route: 048
     Dates: start: 20070711
  6. ZOLOFT [Concomitant]
     Dosage: 100 MG, DAILY
  7. XANAX [Concomitant]
     Dosage: 0.25 MG, BID
  8. NEURONTIN [Concomitant]
     Dosage: 300 MG H.S.
  9. CALCIUM D [Concomitant]
     Dosage: DAILY
  10. NEUPOGEN [Concomitant]
     Indication: ANAEMIA
  11. EXJADE [Suspect]
     Dosage: 500 MG, BID
     Route: 048
     Dates: start: 20090101
  12. MULTI-VITAMIN [Concomitant]
  13. LAXATIVES [Concomitant]
     Dosage: PRN
  14. DARVOCET-N 100 [Concomitant]
     Dosage: PRN
  15. REQUIP [Concomitant]
     Dosage: PRN

REACTIONS (15)
  - RESTLESS LEGS SYNDROME [None]
  - BACK PAIN [None]
  - DIARRHOEA [None]
  - HUMERUS FRACTURE [None]
  - DYSPNOEA [None]
  - FALL [None]
  - DISCOMFORT [None]
  - FATIGUE [None]
  - SERUM FERRITIN INCREASED [None]
  - RASH [None]
  - CANDIDIASIS [None]
  - DYSPHONIA [None]
  - PARAESTHESIA [None]
  - BONE DISORDER [None]
  - NEUROPATHY PERIPHERAL [None]
